FAERS Safety Report 18508895 (Version 3)
Quarter: 2022Q4

REPORT INFORMATION
  Report Type: Spontaneous
  Country: US (occurrence: US)
  Receive Date: 20201117
  Receipt Date: 20221007
  Transmission Date: 20230112
  Serious: Yes (Death, Other)
  Sender: FDA-Public Use
  Company Number: US-SAARTEMIS-SAC202011120498

PATIENT
  Age: 59 Year
  Sex: Male

DRUGS (1)
  1. ZANTAC [Suspect]
     Active Substance: RANITIDINE HYDROCHLORIDE
     Indication: Dyspepsia
     Dosage: 150 MG, QD
     Dates: start: 198303, end: 201910

REACTIONS (7)
  - Pancreatic carcinoma [Fatal]
  - Gastric cancer [Fatal]
  - Hepatic cancer [Fatal]
  - Prostate cancer [Unknown]
  - Colorectal cancer [Unknown]
  - Gastrointestinal carcinoma [Unknown]
  - Splenic neoplasm malignancy unspecified [Unknown]

NARRATIVE: CASE EVENT DATE: 20070101
